FAERS Safety Report 12331648 (Version 1)
Quarter: 2016Q2

REPORT INFORMATION
  Report Type: Spontaneous
  Country: IN (occurrence: IN)
  Receive Date: 20160504
  Receipt Date: 20160504
  Transmission Date: 20160815
  Serious: Yes (Death, Life-Threatening, Other)
  Sender: FDA-Public Use
  Company Number: IN-OTSUKA-US-2014-14347

PATIENT

DRUGS (2)
  1. DACOGEN [Suspect]
     Active Substance: DECITABINE
     Indication: ACUTE MYELOID LEUKAEMIA
     Dosage: 20 MG/M2, QD, 1-HOUR IV INFUSION ON 5 CONSECUTIVE DAYS, AND CYCLE REPEATED EVERY 4 WEEKS
     Route: 042
  2. DACOGEN [Suspect]
     Active Substance: DECITABINE
     Indication: MYELODYSPLASTIC SYNDROME

REACTIONS (14)
  - Upper respiratory tract infection [Unknown]
  - Nausea [Unknown]
  - Dyspepsia [Unknown]
  - Neutropenia [Fatal]
  - Rectal haemorrhage [Unknown]
  - Treatment failure [Unknown]
  - Fatigue [Unknown]
  - Leukopenia [Unknown]
  - Vomiting [Unknown]
  - Pyrexia [Unknown]
  - Multi-organ disorder [Unknown]
  - Sepsis [Fatal]
  - Pneumonia [Unknown]
  - Myelodysplastic syndrome [Unknown]
